FAERS Safety Report 17187766 (Version 1)
Quarter: 2019Q4

REPORT INFORMATION
  Report Type: Spontaneous
  Country: US (occurrence: US)
  Receive Date: 20191221
  Receipt Date: 20191221
  Transmission Date: 20200122
  Serious: Yes (Hospitalization)
  Sender: FDA-Public Use
  Company Number: US-MICRO LABS LIMITED-ML2019-03683

PATIENT
  Age: 6 Year
  Sex: Male

DRUGS (8)
  1. CLONIDINE. [Suspect]
     Active Substance: CLONIDINE
     Indication: AGITATION
  2. DIPHENHYDRAMINE HYDROCHLORIDE. [Suspect]
     Active Substance: DIPHENHYDRAMINE HYDROCHLORIDE
     Indication: INSOMNIA
  3. OLANZAPINE. [Suspect]
     Active Substance: OLANZAPINE
     Indication: INSOMNIA
     Dosage: OLANZAPINE 5 MG TWICE DAILY
  4. DIPHENHYDRAMINE HYDROCHLORIDE. [Suspect]
     Active Substance: DIPHENHYDRAMINE HYDROCHLORIDE
     Indication: AGITATION
  5. LORAZEPAM. [Suspect]
     Active Substance: LORAZEPAM
     Indication: INSOMNIA
     Dosage: LORAZEPAM 1.5 MG AS NEEDED AT NIGHT
  6. CLONIDINE. [Suspect]
     Active Substance: CLONIDINE
     Indication: INSOMNIA
     Dosage: CLONIDINE 0.2 MG AT NIGHT
  7. LORAZEPAM. [Suspect]
     Active Substance: LORAZEPAM
     Indication: AGITATION
  8. OLANZAPINE. [Suspect]
     Active Substance: OLANZAPINE
     Indication: AGITATION

REACTIONS (6)
  - Condition aggravated [Recovering/Resolving]
  - Irritability [Recovering/Resolving]
  - Aggression [Recovering/Resolving]
  - Drug tolerance [Recovering/Resolving]
  - Paradoxical drug reaction [Recovering/Resolving]
  - Self-injurious ideation [Recovering/Resolving]
